FAERS Safety Report 9571108 (Version 1)
Quarter: 2013Q1

REPORT INFORMATION
  Report Type: Spontaneous
  Country: US (occurrence: None)
  Receive Date: 20120827
  Receipt Date: 20120827
  Transmission Date: 20140127
  Serious: No
  Sender: FDA-Public Use
  Company Number: 353177

PATIENT
  Sex: Male

DRUGS (4)
  1. VICTOZA [Suspect]
     Indication: DIABETES MELLITUS
     Dosage: UNK, SUBCUTANEOUS
     Route: 058
     Dates: start: 20120522
  2. VICTOZA [Suspect]
     Indication: WEIGHT CONTROL
     Dosage: UNK, SUBCUTANEOUS
     Route: 058
     Dates: start: 20120522
  3. NOVOLOG MIX 70/30 (INSULIN ASPART) SUSPENSION FOR INJECTION, 100 U/ML [Concomitant]
  4. METFORMIN (METFORMIN) [Concomitant]

REACTIONS (3)
  - Eructation [None]
  - Abdominal discomfort [None]
  - Hypoglycaemia [None]
